FAERS Safety Report 15392985 (Version 1)
Quarter: 2018Q3

REPORT INFORMATION
  Report Type: Spontaneous
  Country: US (occurrence: US)
  Receive Date: 20180917
  Receipt Date: 20180917
  Transmission Date: 20181010
  Serious: No
  Sender: FDA-Public Use
  Company Number: US-TEVA-2018-US-954528

PATIENT
  Age: 48 Year
  Sex: Male

DRUGS (4)
  1. LEVETIRACETAM. [Suspect]
     Active Substance: LEVETIRACETAM
     Indication: POST-ANOXIC MYOCLONUS
     Route: 048
  2. CLONAZEPAM. [Suspect]
     Active Substance: CLONAZEPAM
     Indication: POST-ANOXIC MYOCLONUS
     Dosage: INITIAL DOSE NOT STATED; LATER DOSE GRADUALLY INCREASED TO 1.5MG THRICE DAILY
     Route: 048
  3. DIVALPROEX SODIUM. [Suspect]
     Active Substance: DIVALPROEX SODIUM
     Indication: POST-ANOXIC MYOCLONUS
     Route: 048
  4. BACLOFEN. [Suspect]
     Active Substance: BACLOFEN
     Indication: POST-ANOXIC MYOCLONUS
     Dosage: LATER, MEDTRONIC SYNCHROMED II PUMP WAS PLACED WITH CONTINUOUS BACLOFEN DOSING OF 99.6 MICROG PER...
     Route: 037

REACTIONS (3)
  - Off label use [Unknown]
  - Condition aggravated [Unknown]
  - Cognitive disorder [Unknown]
